FAERS Safety Report 8298658-2 (Version None)
Quarter: 2012Q2

REPORT INFORMATION
  Report Type: 
  Country: None (occurrence: None)
  Receive Date: 20120419
  Receipt Date: 20120410
  Transmission Date: 20120825
  Serious: Yes (Death, Hospitalization)
  Sender: FDA-Public Use
  Company Number: MX-CELGENEUS-107-C5013-11102616

PATIENT
  Sex: Male
  Weight: 55 kg

DRUGS (6)
  1. LENALIDOMIDE [Suspect]
     Indication: PROSTATE CANCER
     Dosage: 25 MILLIGRAM
     Route: 048
     Dates: start: 20110307, end: 20111021
  2. PREDNISONE TAB [Suspect]
     Indication: PROSTATE CANCER
     Dosage: 5 MILLIGRAM
     Route: 048
     Dates: start: 20110307
  3. DOCETAXEL [Suspect]
     Dosage: 10 MILLIGRAM
     Route: 065
     Dates: start: 20111003, end: 20111021
  4. LENALIDOMIDE [Suspect]
     Dosage: 25 MILLIGRAM
     Route: 048
     Dates: start: 20111003, end: 20111021
  5. DOCETAXEL [Suspect]
     Indication: PROSTATE CANCER
     Dosage: 130 MILLIGRAM
     Route: 065
     Dates: start: 20110307
  6. PREDNISONE TAB [Suspect]
     Dosage: 5 MILLIGRAM
     Route: 048
     Dates: start: 20111003, end: 20111021

REACTIONS (3)
  - PANCYTOPENIA [None]
  - HYPONATRAEMIA [None]
  - PNEUMONIA [None]
